FAERS Safety Report 4680867-2 (Version None)
Quarter: 2005Q2

REPORT INFORMATION
  Report Type: 
  Country: None (occurrence: None)
  Receive Date: 20050531
  Receipt Date: 20050531
  Transmission Date: 20051028
  Serious: Yes (Other)
  Sender: FDA-Public Use
  Company Number: None

PATIENT
  Age: 54 Year
  Sex: Male
  Weight: 93.8946 kg

DRUGS (2)
  1. FENTANYL [Suspect]
     Indication: NEUROPATHY
     Dosage: 75 MCG/HR
     Dates: start: 20050301, end: 20050401
  2. FENTANYL [Suspect]
     Indication: OSTEOARTHRITIS
     Dosage: 75 MCG/HR
     Dates: start: 20050301, end: 20050401

REACTIONS (4)
  - ABDOMINAL PAIN [None]
  - DIARRHOEA [None]
  - NAUSEA [None]
  - VOMITING [None]
